FAERS Safety Report 9833366 (Version 2)
Quarter: 2014Q2

REPORT INFORMATION
  Report Type: Spontaneous
  Country: US (occurrence: US)
  Receive Date: 20140121
  Receipt Date: 20140415
  Transmission Date: 20141212
  Serious: No
  Sender: FDA-Public Use
  Company Number: US-TEVA-451329USA

PATIENT
  Age: 45 Year
  Sex: Female

DRUGS (1)
  1. TRIAMCINOLONE [Suspect]

REACTIONS (1)
  - Drug ineffective [Recovered/Resolved with Sequelae]
